FAERS Safety Report 13041742 (Version 1)
Quarter: 2016Q4

REPORT INFORMATION
  Report Type: Spontaneous
  Country: US (occurrence: US)
  Receive Date: 20161219
  Receipt Date: 20161219
  Transmission Date: 20170207
  Serious: No
  Sender: FDA-Public Use
  Company Number: US-ROCHE-1329833

PATIENT
  Age: 43 Year
  Sex: Female

DRUGS (6)
  1. XANAX [Concomitant]
     Active Substance: ALPRAZOLAM
     Route: 065
  2. ZELBORAF [Suspect]
     Active Substance: VEMURAFENIB
     Indication: PRODUCT USED FOR UNKNOWN INDICATION
     Route: 048
     Dates: start: 20121214
  3. KEPPRA [Concomitant]
     Active Substance: LEVETIRACETAM
     Route: 065
  4. LASIX [Concomitant]
     Active Substance: FUROSEMIDE
     Route: 065
  5. CELEXA [Concomitant]
     Active Substance: CITALOPRAM HYDROBROMIDE
     Route: 065
  6. NEXIUM [Concomitant]
     Active Substance: ESOMEPRAZOLE MAGNESIUM
     Route: 065

REACTIONS (1)
  - Pain [Recovered/Resolved]

NARRATIVE: CASE EVENT DATE: 20131224
